FAERS Safety Report 11611023 (Version 1)
Quarter: 2015Q4

REPORT INFORMATION
  Report Type: Spontaneous
  Country: US (occurrence: None)
  Receive Date: 20151007
  Receipt Date: 20151007
  Transmission Date: 20160304
  Serious: No
  Sender: FDA-Public Use
  Company Number: None

PATIENT
  Age: 58 Year
  Sex: Female
  Weight: 79.38 kg

DRUGS (1)
  1. HARVONI [Suspect]
     Active Substance: LEDIPASVIR\SOFOSBUVIR
     Indication: HEPATITIS C
     Route: 048
     Dates: start: 20150923

REACTIONS (9)
  - Musculoskeletal pain [None]
  - Dyspepsia [None]
  - Nausea [None]
  - Headache [None]
  - Vomiting [None]
  - Arthralgia [None]
  - Vision blurred [None]
  - Musculoskeletal stiffness [None]
  - Pain in extremity [None]

NARRATIVE: CASE EVENT DATE: 20151003
